FAERS Safety Report 8800801 (Version 2)
Quarter: 2013Q1

REPORT INFORMATION
  Report Type: Spontaneous
  Country: US (occurrence: US)
  Receive Date: 20120921
  Receipt Date: 20130104
  Transmission Date: 20140127
  Serious: Yes (Other)
  Sender: FDA-Public Use
  Company Number: US-JNJFOC-20120905770

PATIENT
  Age: 51 None
  Sex: Female
  Weight: 77.57 kg

DRUGS (6)
  1. REMICADE [Suspect]
     Indication: RHEUMATOID ARTHRITIS
     Route: 042
     Dates: start: 20120907
  2. REMICADE [Suspect]
     Indication: RHEUMATOID ARTHRITIS
     Route: 042
     Dates: start: 201208
  3. TYLENOL REGULAR STRENGTH [Suspect]
     Indication: PREMEDICATION
     Route: 048
     Dates: start: 201208
  4. TYLENOL REGULAR STRENGTH [Suspect]
     Indication: PREMEDICATION
     Route: 048
     Dates: start: 20120907
  5. BENADRYL [Suspect]
     Indication: PREMEDICATION
     Route: 048
     Dates: start: 201208
  6. BENADRYL [Suspect]
     Indication: PREMEDICATION
     Route: 048
     Dates: start: 20120907

REACTIONS (5)
  - Abdominal distension [Recovered/Resolved]
  - Chest discomfort [Not Recovered/Not Resolved]
  - Somnolence [Recovered/Resolved]
  - Dizziness [Recovered/Resolved]
  - Pain in extremity [Not Recovered/Not Resolved]
